FAERS Safety Report 22054923 (Version 1)
Quarter: 2023Q1

REPORT INFORMATION
  Report Type: Spontaneous
  Country: US (occurrence: US)
  Receive Date: 20230302
  Receipt Date: 20230302
  Transmission Date: 20230418
  Serious: No
  Sender: FDA-Public Use
  Company Number: US-GSKCCFUS-Case-01634945_AE-92313

PATIENT
  Sex: Female

DRUGS (2)
  1. BENLYSTA [Suspect]
     Active Substance: BELIMUMAB
     Indication: Systemic lupus erythematosus
     Dosage: 200 MG, WE 1 DF
     Dates: start: 20221219
  2. GABAPENTIN [Concomitant]
     Active Substance: GABAPENTIN
     Indication: Product used for unknown indication
     Dosage: UNK

REACTIONS (6)
  - Mood altered [Recovered/Resolved]
  - Crying [Unknown]
  - Emotional disorder [Unknown]
  - Anxiety [Unknown]
  - Muscle spasms [Not Recovered/Not Resolved]
  - Drug ineffective [Unknown]
